FAERS Safety Report 16380639 (Version 1)
Quarter: 2019Q2

REPORT INFORMATION
  Report Type: Spontaneous
  Country: FR (occurrence: FR)
  Receive Date: 20190601
  Receipt Date: 20190601
  Transmission Date: 20190711
  Serious: Yes (Other)
  Sender: FDA-Public Use
  Company Number: FR-ACCORD-130403

PATIENT
  Age: 67 Year
  Sex: Male
  Weight: 98 kg

DRUGS (13)
  1. RAMIPRIL. [Suspect]
     Active Substance: RAMIPRIL
     Indication: PRODUCT USED FOR UNKNOWN INDICATION
  2. BRINTELLIX [Concomitant]
     Active Substance: VORTIOXETINE HYDROBROMIDE
  3. STAGID [Concomitant]
     Active Substance: METFORMIN PAMOATE
  4. ATORVASTATIN [Concomitant]
     Active Substance: ATORVASTATIN
  5. IOMEPROL [Suspect]
     Active Substance: IOMEPROL
     Indication: ANGIOPLASTY
     Dosage: STRENGTH:350 (350 MG IODE/ML),SOLUTION INJECTABLE
     Route: 013
     Dates: start: 20190325, end: 20190325
  6. ISOPTINE [Suspect]
     Active Substance: VERAPAMIL HYDROCHLORIDE
     Indication: ANGIOPLASTY
     Route: 022
     Dates: start: 20190325, end: 20190325
  7. ISOSORBIDE. [Suspect]
     Active Substance: ISOSORBIDE
     Indication: ANGIOPLASTY
     Route: 022
     Dates: start: 20190325, end: 20190325
  8. BRILIQUE [Concomitant]
     Active Substance: TICAGRELOR
  9. BISOPROLOL [Concomitant]
     Active Substance: BISOPROLOL
  10. EPHEDRINE. [Suspect]
     Active Substance: EPHEDRINE
     Indication: ANGIOPLASTY
     Route: 042
     Dates: start: 20190325, end: 20190325
  11. XYLOCAINE [Suspect]
     Active Substance: LIDOCAINE HYDROCHLORIDE
     Indication: ANGIOPLASTY
     Route: 058
     Dates: start: 20190325, end: 20190325
  12. KARDEGIC [Concomitant]
     Active Substance: ASPIRIN DL-LYSINE
  13. HEPARIN [Suspect]
     Active Substance: HEPARIN SODIUM
     Indication: ANGIOPLASTY
     Route: 022
     Dates: start: 20190325, end: 20190325

REACTIONS (2)
  - Erythema [Recovered/Resolved]
  - Pruritus [Recovered/Resolved]

NARRATIVE: CASE EVENT DATE: 20190326
